FAERS Safety Report 15558598 (Version 1)
Quarter: 2018Q4

REPORT INFORMATION
  Report Type: Report from Study
  Country: None (occurrence: CO)
  Receive Date: 20181029
  Receipt Date: 20181029
  Transmission Date: 20190205
  Serious: Yes (Other)
  Sender: FDA-Public Use
  Company Number: CO-ABBVIE-18K-036-2535751-00

PATIENT
  Age: 60 Year
  Sex: Female
  Weight: 75 kg

DRUGS (3)
  1. HUMIRA [Suspect]
     Active Substance: ADALIMUMAB
     Indication: CROHN^S DISEASE
     Route: 058
     Dates: start: 20180228, end: 20181003
  2. ESOMEPRAZOLE. [Concomitant]
     Active Substance: ESOMEPRAZOLE MAGNESIUM
     Indication: PRODUCT USED FOR UNKNOWN INDICATION
  3. AZATHIOPRINE. [Concomitant]
     Active Substance: AZATHIOPRINE
     Indication: PRODUCT USED FOR UNKNOWN INDICATION

REACTIONS (9)
  - Synovial cyst [Recovering/Resolving]
  - Erythema [Unknown]
  - Echocardiogram abnormal [Unknown]
  - Osteoarthritis [Recovering/Resolving]
  - Surgery [Recovering/Resolving]
  - Computerised tomogram abnormal [Unknown]
  - Gait disturbance [Unknown]
  - Meniscus injury [Recovering/Resolving]
  - X-ray abnormal [Unknown]

NARRATIVE: CASE EVENT DATE: 2018
